FAERS Safety Report 10980285 (Version 2)
Quarter: 2015Q2

REPORT INFORMATION
  Report Type: Spontaneous
  Country: US (occurrence: US)
  Receive Date: 20150402
  Receipt Date: 20150525
  Transmission Date: 20150821
  Serious: No
  Sender: FDA-Public Use
  Company Number: US-JNJFOC-20130708751

PATIENT
  Age: 76 Year
  Sex: Female
  Weight: 56.25 kg

DRUGS (3)
  1. TENLOL [Concomitant]
     Indication: BLOOD PRESSURE
     Dosage: SINCE 15 YEARS
     Route: 065
     Dates: start: 1998
  2. IMODIUM MULTI-SYMPTOM RELIEF [Suspect]
     Active Substance: DIMETHICONE\LOPERAMIDE HYDROCHLORIDE
     Route: 048
  3. IMODIUM MULTI-SYMPTOM RELIEF [Suspect]
     Active Substance: DIMETHICONE\LOPERAMIDE HYDROCHLORIDE
     Indication: DIARRHOEA
     Dosage: 1 OR 2 CAPLETS A DAY
     Route: 048
     Dates: start: 20130710, end: 20130711

REACTIONS (2)
  - Dysphagia [Not Recovered/Not Resolved]
  - Product quality issue [Unknown]

NARRATIVE: CASE EVENT DATE: 20130710
